FAERS Safety Report 10165315 (Version 2)
Quarter: 2014Q2

REPORT INFORMATION
  Report Type: Spontaneous
  Country: US (occurrence: US)
  Receive Date: 20140510
  Receipt Date: 20140510
  Transmission Date: 20141212
  Serious: No
  Sender: FDA-Public Use
  Company Number: US-BRISTOL-MYERS SQUIBB COMPANY-19798404

PATIENT
  Age: 66 Year
  Sex: Female
  Weight: 81.63 kg

DRUGS (2)
  1. BYDUREON [Suspect]
     Indication: TYPE 2 DIABETES MELLITUS
     Dosage: PRESCRIPTION #: 244811257,THERAPY DATE:10NOV13
     Route: 058
     Dates: start: 20131025
  2. ZOLOFT [Concomitant]

REACTIONS (3)
  - Blood glucose increased [Unknown]
  - Confusional state [Recovering/Resolving]
  - Amnesia [Recovering/Resolving]
